FAERS Safety Report 7641588-7 (Version None)
Quarter: 2011Q3

REPORT INFORMATION
  Report Type: 
  Country: None (occurrence: None)
  Receive Date: 20110727
  Receipt Date: 20110727
  Transmission Date: 20111222
  Serious: No
  Sender: FDA-Public Use
  Company Number: None

PATIENT
  Age: 30 Year
  Sex: Male
  Weight: 90.9 kg

DRUGS (1)
  1. AMITRIPTYLINE HCL [Suspect]
     Indication: PAIN
     Dosage: 25 MG TID PO
     Route: 048
     Dates: start: 20110209, end: 20110210

REACTIONS (3)
  - DRUG DEPENDENCE [None]
  - SUICIDAL IDEATION [None]
  - TOXICITY TO VARIOUS AGENTS [None]
